FAERS Safety Report 15503253 (Version 1)
Quarter: 2018Q4

REPORT INFORMATION
  Report Type: Spontaneous
  Country: US (occurrence: US)
  Receive Date: 20181008
  Receipt Date: 20181008
  Transmission Date: 20190205
  Serious: No
  Sender: FDA-Public Use
  Company Number: None

PATIENT
  Age: 56 Year
  Sex: Female
  Weight: 84.6 kg

DRUGS (3)
  1. CVS MAXIMUM STRENGTH COLD AND HOT PAIN RELIEF TOPICAL ANALGESIC [Suspect]
     Active Substance: MENTHOL
     Indication: MYALGIA
     Route: 061
     Dates: start: 20181007, end: 20181007
  2. JANUMET [Concomitant]
     Active Substance: METFORMIN HYDROCHLORIDE\SITAGLIPTIN PHOSPHATE
  3. INVOCANA [Concomitant]

REACTIONS (4)
  - Application site pain [None]
  - Application site vesicles [None]
  - Skin ulcer [None]
  - Chemical burn [None]

NARRATIVE: CASE EVENT DATE: 20181007
